FAERS Safety Report 20707710 (Version 5)
Quarter: 2022Q2

REPORT INFORMATION
  Report Type: Report from Study
  Country: KR (occurrence: KR)
  Receive Date: 20220413
  Receipt Date: 20220520
  Transmission Date: 20220720
  Serious: Yes (Hospitalization, Other)
  Sender: FDA-Public Use
  Company Number: KR-CELLTRION INC.-2022KR003756

PATIENT

DRUGS (43)
  1. TRUXIMA [Suspect]
     Active Substance: RITUXIMAB-ABBS
     Indication: Chemotherapy
     Dosage: UNK
     Route: 042
     Dates: start: 20220128, end: 20220425
  2. TRUXIMA [Suspect]
     Active Substance: RITUXIMAB-ABBS
     Indication: Central nervous system lymphoma
     Dosage: CYCLE 1: D1/8/15 375MG/M2
  3. TRUXIMA [Suspect]
     Active Substance: RITUXIMAB-ABBS
     Dosage: CYLCE 2-6: D1 375 MG/M2
  4. IBRUTINIB [Suspect]
     Active Substance: IBRUTINIB
     Indication: Chemotherapy
     Dosage: UNK
     Route: 042
     Dates: start: 20220128, end: 20220425
  5. IBRUTINIB [Suspect]
     Active Substance: IBRUTINIB
     Indication: Central nervous system lymphoma
     Dosage: CYCLE 1: D1-21 560MG/D
  6. IBRUTINIB [Suspect]
     Active Substance: IBRUTINIB
     Dosage: CYCLE 2-6: D1-21 560 MG/D
  7. IFOSFAMIDE [Suspect]
     Active Substance: IFOSFAMIDE
     Indication: Product used for unknown indication
     Dosage: CYCLE 1: D2 3.75 G/M2
  8. IFOSFAMIDE [Suspect]
     Active Substance: IFOSFAMIDE
     Dosage: CYCLE 2-6: D2 3.75 G/M2
  9. ETOPOSIDE [Suspect]
     Active Substance: ETOPOSIDE
     Indication: Product used for unknown indication
     Dosage: CYCLE 1: D2-4 100 MG/M2
  10. ETOPOSIDE [Suspect]
     Active Substance: ETOPOSIDE
     Dosage: CYCLE 2-6: D2-4 100 MG/M2
  11. COZAAR [Concomitant]
     Active Substance: LOSARTAN POTASSIUM
     Indication: Hypertension
     Dosage: 50 MG, QD
     Route: 048
     Dates: end: 20220201
  12. COZAAR [Concomitant]
     Active Substance: LOSARTAN POTASSIUM
     Dosage: 25 MG, QD
     Route: 048
     Dates: start: 20220208, end: 20220404
  13. CRESTOR [Concomitant]
     Active Substance: ROSUVASTATIN CALCIUM
     Indication: Dyslipidaemia
     Dosage: 5 MG, TID
     Route: 048
  14. EPILATAM [Concomitant]
     Indication: Seizure prophylaxis
     Dosage: 1000 MG, TID
     Route: 048
     Dates: start: 20220123, end: 20220201
  15. EPILATAM [Concomitant]
     Indication: Seizure prophylaxis
     Dosage: 500 MG, TID
     Route: 048
     Dates: start: 20220202
  16. TOPAMAX [Concomitant]
     Active Substance: TOPIRAMATE
     Indication: Seizure prophylaxis
     Dosage: 50 MG, TID
     Route: 048
     Dates: start: 20220128
  17. DICAMAX [Concomitant]
     Indication: Osteoporosis prophylaxis
     Dosage: 1 DOSAGE FORM (TAB), QD
     Route: 048
     Dates: start: 20220126
  18. FOLIC ACID [Concomitant]
     Active Substance: FOLIC ACID
     Indication: Anaemia prophylaxis
     Dosage: 1 MG, QD
     Route: 048
     Dates: start: 20220205
  19. NEXIUM [Concomitant]
     Active Substance: ESOMEPRAZOLE MAGNESIUM
     Indication: Prophylaxis against gastrointestinal ulcer
     Dosage: 20 MG, QD
     Route: 048
     Dates: start: 20220129
  20. ACYCLOVIR [Concomitant]
     Active Substance: ACYCLOVIR
     Indication: Prophylaxis
     Dosage: 200 MG, BID
     Route: 048
     Dates: start: 20220128
  21. DIFLUCAN [Concomitant]
     Active Substance: FLUCONAZOLE
     Indication: Infection prophylaxis
     Dosage: 2 DOSAGE FORM (CAP) QD
     Route: 048
     Dates: start: 20220128
  22. SULFAMETHOXAZOLE\TRIMETHOPRIM [Concomitant]
     Active Substance: SULFAMETHOXAZOLE\TRIMETHOPRIM
     Indication: Infection prophylaxis
     Dosage: 1 DOSAGE FORM (TABLET) QD
     Route: 048
     Dates: start: 20220126
  23. ZYVOX [Concomitant]
     Active Substance: LINEZOLID
     Indication: Enterococcal infection
     Dosage: 2 MG, BID
     Route: 042
     Dates: start: 20220205, end: 20220207
  24. ZYVOX [Concomitant]
     Active Substance: LINEZOLID
     Dosage: 1 DOSAGE FORM, QD
     Route: 042
     Dates: start: 20220205, end: 20220207
  25. PIPERACILLIN SODIUM\TAZOBACTAM SODIUM [Concomitant]
     Active Substance: PIPERACILLIN SODIUM\TAZOBACTAM SODIUM
     Indication: Pyrexia
     Dosage: 4.5 GRAM, QID
     Route: 042
     Dates: start: 20220131, end: 20220205
  26. PIPERACILLIN SODIUM\TAZOBACTAM SODIUM [Concomitant]
     Active Substance: PIPERACILLIN SODIUM\TAZOBACTAM SODIUM
     Indication: Pneumonia
     Dosage: 3.375 GRAM, QID
     Route: 042
     Dates: start: 20220206, end: 20220208
  27. PIPERACILLIN SODIUM\TAZOBACTAM SODIUM [Concomitant]
     Active Substance: PIPERACILLIN SODIUM\TAZOBACTAM SODIUM
     Dosage: 4.5 G, QID
     Route: 042
     Dates: start: 20220429, end: 20220504
  28. TARGOCID [Concomitant]
     Active Substance: TEICOPLANIN
     Indication: Pyrexia
     Dosage: 250 MG, PRN
     Route: 042
     Dates: start: 20220202, end: 20220205
  29. TARGOCID [Concomitant]
     Active Substance: TEICOPLANIN
     Indication: Pneumonia
     Dosage: 240 MG, QD
     Route: 042
     Dates: start: 20220502, end: 20220503
  30. PROPACETAMOL HYDROCHLORIDE [Concomitant]
     Active Substance: PROPACETAMOL HYDROCHLORIDE
     Indication: Pyrexia
     Dosage: 1 GRAM, PRN
     Route: 042
     Dates: start: 20220114, end: 20220222
  31. PROPACETAMOL HYDROCHLORIDE [Concomitant]
     Active Substance: PROPACETAMOL HYDROCHLORIDE
     Indication: Prophylaxis
     Dosage: 1 G, BID
     Route: 048
     Dates: start: 20220429
  32. PROPACETAMOL HYDROCHLORIDE [Concomitant]
     Active Substance: PROPACETAMOL HYDROCHLORIDE
     Dosage: 1 G, PRN
     Route: 042
     Dates: start: 20220429, end: 20220510
  33. MEGACE [Concomitant]
     Active Substance: MEGESTROL ACETATE
     Indication: Decreased appetite
     Dosage: 1 PACK QD
     Route: 048
     Dates: start: 20220211
  34. MEGACE [Concomitant]
     Active Substance: MEGESTROL ACETATE
     Indication: Prophylaxis
  35. LYRICA [Concomitant]
     Active Substance: PREGABALIN
     Indication: Neuropathy peripheral
     Dosage: 75 MG, BID
     Route: 048
     Dates: start: 20220302
  36. LYRICA [Concomitant]
     Active Substance: PREGABALIN
     Indication: Prophylaxis
  37. REBAMIPIDE [Concomitant]
     Active Substance: REBAMIPIDE
     Indication: Prophylaxis against gastrointestinal ulcer
     Dosage: 1 DOSAGE FORM (TABLET), TID
     Route: 048
     Dates: start: 20220218
  38. POTASSIUM CHLORIDE [Concomitant]
     Active Substance: POTASSIUM CHLORIDE
     Indication: Hypocalcaemia
     Dosage: 2 DOSAGE FORM (TABLET), PRN
     Route: 048
     Dates: start: 20220208, end: 20220218
  39. POTASSIUM CHLORIDE [Concomitant]
     Active Substance: POTASSIUM CHLORIDE
     Indication: Prophylaxis
  40. PENIRAMIN [Concomitant]
     Indication: Premedication
     Dosage: 4 MG, PRN
     Route: 042
     Dates: start: 20220128
  41. TYLENOL [Concomitant]
     Active Substance: ACETAMINOPHEN
     Indication: Premedication
     Dosage: 1 DOSAGE FORM (TABLET), PRN
     Route: 048
     Dates: start: 20220128
  42. ALOXI [Concomitant]
     Active Substance: PALONOSETRON HYDROCHLORIDE
     Indication: Premedication
     Dosage: 0.25 ML, PRN
     Route: 042
     Dates: start: 20220128
  43. CALCIUM [Concomitant]
     Active Substance: CALCIUM
     Indication: Vitamin supplementation
     Dosage: 1 CAP BID
     Route: 048
     Dates: start: 20220331

REACTIONS (7)
  - Pyrexia [Recovered/Resolved]
  - Myalgia [Recovered/Resolved]
  - Hypotension [Recovered/Resolved]
  - COVID-19 [Not Recovered/Not Resolved]
  - Pyrexia [Not Recovered/Not Resolved]
  - Pneumonia [Recovered/Resolved]
  - Intentional dose omission [Unknown]

NARRATIVE: CASE EVENT DATE: 20220322
